FAERS Safety Report 6054457-3 (Version None)
Quarter: 2009Q1

REPORT INFORMATION
  Report Type: 
  Country: None (occurrence: None)
  Receive Date: 20090123
  Receipt Date: 20090123
  Transmission Date: 20090719
  Serious: Yes (Hospitalization)
  Sender: FDA-Public Use
  Company Number: None

PATIENT
  Age: 56 Year
  Sex: Male
  Weight: 61.2356 kg

DRUGS (19)
  1. RECLAST [Suspect]
     Indication: PROPHYLAXIS
     Dosage: 5 MG/100 ML IV ONE TIME
     Route: 042
     Dates: end: 20081229
  2. RECLAST [Suspect]
     Indication: RESORPTION BONE INCREASED
     Dosage: 5 MG/100 ML IV ONE TIME
     Route: 042
     Dates: end: 20081229
  3. DRISDOL [Suspect]
     Indication: VITAMIN D DEFICIENCY
     Dosage: 50,000 UNITS QD X 5 DAY
     Dates: start: 20081218, end: 20081222
  4. CYCLOSPORINE [Concomitant]
  5. CELLCEPT [Concomitant]
  6. PREDNISONE [Concomitant]
  7. MEPRON [Concomitant]
  8. MYCOSTATIN [Concomitant]
  9. VALCYTE [Concomitant]
  10. ASPIRIN [Concomitant]
  11. LIPITOR [Concomitant]
  12. SYNTHROID [Concomitant]
  13. SLIDENAFIL [Concomitant]
  14. NEXIUM [Concomitant]
  15. CITRACAL [Concomitant]
  16. IRON [Concomitant]
  17. M.V.I. [Concomitant]
  18. LANTUS [Concomitant]
  19. KLONOPIN [Concomitant]

REACTIONS (11)
  - DRUG LEVEL INCREASED [None]
  - EMPYEMA [None]
  - HYDRONEPHROSIS [None]
  - NEPHROLITHIASIS [None]
  - NEUTROPENIA [None]
  - PLEURAL EFFUSION [None]
  - RENAL ATROPHY [None]
  - RENAL IMPAIRMENT [None]
  - SEPSIS [None]
  - STAPHYLOCOCCAL BACTERAEMIA [None]
  - THERAPEUTIC AGENT TOXICITY [None]
